FAERS Safety Report 20291931 (Version 11)
Quarter: 2024Q4

REPORT INFORMATION
  Report Type: Spontaneous
  Country: US (occurrence: US)
  Receive Date: 20220104
  Receipt Date: 20241128
  Transmission Date: 20250115
  Serious: Yes (Other)
  Sender: PFIZER
  Company Number: US-PFIZER INC-202101472316

PATIENT
  Age: 69 Year
  Sex: Female

DRUGS (3)
  1. XELJANZ XR [Suspect]
     Active Substance: TOFACITINIB CITRATE
     Dosage: 11 MG, 1X/DAY
     Route: 048
  2. XELJANZ XR [Suspect]
     Active Substance: TOFACITINIB CITRATE
     Dosage: 11 MG, 1X/DAY
     Route: 048
  3. XELJANZ XR [Suspect]
     Active Substance: TOFACITINIB CITRATE
     Dosage: 11 MG, 1X/DAY
     Route: 048

REACTIONS (13)
  - Joint arthroplasty [Unknown]
  - Arthralgia [Unknown]
  - Feeling hot [Unknown]
  - Condition aggravated [Unknown]
  - Joint swelling [Unknown]
  - Neck pain [Unknown]
  - Hypersensitivity [Unknown]
  - Central auditory processing disorder [Unknown]
  - Heart valve incompetence [Unknown]
  - Peripheral swelling [Recovered/Resolved]
  - Weight decreased [Unknown]
  - Blood pressure increased [Recovered/Resolved]
  - Dyspepsia [Recovered/Resolved]

NARRATIVE: CASE EVENT DATE: 20230101
